FAERS Safety Report 13249593 (Version 1)
Quarter: 2017Q1

REPORT INFORMATION
  Report Type: Spontaneous
  Country: US (occurrence: US)
  Receive Date: 20170218
  Receipt Date: 20170218
  Transmission Date: 20170428
  Serious: No
  Sender: FDA-Public Use
  Company Number: US-ALLERGAN-1669807US

PATIENT
  Sex: Female

DRUGS (1)
  1. RESTASIS [Suspect]
     Active Substance: CYCLOSPORINE
     Indication: DRY EYE
     Dosage: 1 GTT, BID
     Route: 047
     Dates: start: 2006, end: 201608

REACTIONS (6)
  - Rheumatoid arthritis [Not Recovered/Not Resolved]
  - Retinal injury [Unknown]
  - Dry eye [Not Recovered/Not Resolved]
  - Wrong technique in product usage process [Unknown]
  - Drug dose omission [Unknown]
  - Vision blurred [Not Recovered/Not Resolved]

NARRATIVE: CASE EVENT DATE: 2016
